FAERS Safety Report 6998178-9 (Version None)
Quarter: 2010Q3

REPORT INFORMATION
  Report Type: 
  Country: None (occurrence: None)
  Receive Date: 20100920
  Receipt Date: 20100526
  Transmission Date: 20110219
  Serious: No
  Sender: FDA-Public Use
  Company Number: US-ASTRAZENECA-2010SE21926

PATIENT
  Age: 35 Year
  Sex: Male
  Weight: 89.8 kg

DRUGS (4)
  1. SEROQUEL XR [Suspect]
     Indication: BIPOLAR DISORDER
     Route: 048
     Dates: start: 20100430, end: 20100512
  2. SOMA [Concomitant]
  3. LORTAB [Concomitant]
     Dosage: 5/500
  4. XANAX [Concomitant]
     Indication: BACK PAIN

REACTIONS (4)
  - CHEST PAIN [None]
  - DYSARTHRIA [None]
  - PALPITATIONS [None]
  - TACHYCARDIA [None]
